FAERS Safety Report 22040965 (Version 2)
Quarter: 2023Q1

REPORT INFORMATION
  Report Type: Spontaneous
  Country: US (occurrence: US)
  Receive Date: 20230227
  Receipt Date: 20230306
  Transmission Date: 20230418
  Serious: Yes (Death, Other)
  Sender: FDA-Public Use
  Company Number: US-009507513-2302USA008320

PATIENT
  Sex: Female
  Weight: 102.8 kg

DRUGS (2)
  1. KEYTRUDA [Suspect]
     Active Substance: PEMBROLIZUMAB
     Dosage: UNK
  2. LENVATINIB MESYLATE [Concomitant]
     Active Substance: LENVATINIB MESYLATE
     Indication: Endometrial cancer
     Dosage: 16 MILLIGRAM, QD
     Dates: start: 20230106, end: 20230119

REACTIONS (5)
  - Malignant neoplasm progression [Fatal]
  - Cognitive disorder [Unknown]
  - Hospice care [Unknown]
  - Confusional state [Unknown]
  - Product use issue [Unknown]
